FAERS Safety Report 8571984-5 (Version None)
Quarter: 2012Q3

REPORT INFORMATION
  Report Type: 
  Country: None (occurrence: None)
  Receive Date: 20120806
  Receipt Date: 20120731
  Transmission Date: 20120928
  Serious: Yes (Other)
  Sender: FDA-Public Use
  Company Number: US-BAYER-2012-077507

PATIENT
  Age: 66 Year
  Sex: Female
  Weight: 77.098 kg

DRUGS (2)
  1. THYROID MEDICATON NOS [Concomitant]
     Indication: HYPOTHYROIDISM
  2. ALEVE (CAPLET) [Suspect]
     Indication: BACK PAIN
     Dosage: 440 MG, QD, BOTTLE COUNT 100 CT
     Route: 048
     Dates: start: 20120501, end: 20120716

REACTIONS (6)
  - URTICARIA [None]
  - RASH MACULAR [None]
  - TREMOR [None]
  - HYPERSENSITIVITY [None]
  - CHILLS [None]
  - PRURITUS GENERALISED [None]
